FAERS Safety Report 8488452-1 (Version None)
Quarter: 2012Q3

REPORT INFORMATION
  Report Type: 
  Country: None (occurrence: None)
  Receive Date: 20120705
  Receipt Date: 20120629
  Transmission Date: 20120928
  Serious: Yes (Other)
  Sender: FDA-Public Use
  Company Number: US-PFIZER INC-2012157071

PATIENT
  Sex: Male

DRUGS (1)
  1. BENEFIX [Suspect]
     Indication: FACTOR IX DEFICIENCY
     Dosage: 8000 IU, UNK
     Route: 042
     Dates: start: 20120101

REACTIONS (3)
  - ARTHROPATHY [None]
  - HAEMORRHAGE [None]
  - HAEMARTHROSIS [None]
